FAERS Safety Report 12844877 (Version 2)
Quarter: 2016Q4

REPORT INFORMATION
  Report Type: Spontaneous
  Country: US (occurrence: US)
  Receive Date: 20161013
  Receipt Date: 20161125
  Transmission Date: 20170207
  Serious: Yes (Hospitalization)
  Sender: FDA-Public Use
  Company Number: US-ASTRAZENECA-2016SF06341

PATIENT
  Age: 55 Year
  Sex: Female
  Weight: 84.8 kg

DRUGS (2)
  1. SYMBICORT [Suspect]
     Active Substance: BUDESONIDE\FORMOTEROL FUMARATE DIHYDRATE
     Indication: CHRONIC OBSTRUCTIVE PULMONARY DISEASE
     Dosage: 160/4.5 MICROGRAMS, TWO PUFFS TWO TIMES DAILY
     Route: 055
     Dates: start: 2009
  2. SYMBICORT [Suspect]
     Active Substance: BUDESONIDE\FORMOTEROL FUMARATE DIHYDRATE
     Indication: ASTHMA
     Dosage: 160/4.5 MICROGRAMS, TWO PUFFS TWO TIMES DAILY
     Route: 055
     Dates: start: 2009

REACTIONS (8)
  - Loss of consciousness [Unknown]
  - Off label use [Unknown]
  - Intentional product misuse [Unknown]
  - Device issue [Unknown]
  - Memory impairment [Unknown]
  - Hypokinesia [Unknown]
  - Anxiety [Unknown]
  - Brain neoplasm [Unknown]

NARRATIVE: CASE EVENT DATE: 2009
